FAERS Safety Report 20771343 (Version 1)
Quarter: 2022Q2

REPORT INFORMATION
  Report Type: Spontaneous
  Country: JP (occurrence: JP)
  Receive Date: 20220429
  Receipt Date: 20220429
  Transmission Date: 20220721
  Serious: Yes (Hospitalization)
  Sender: FDA-Public Use
  Company Number: JP-DSJP-DSJ-2022-114726

PATIENT
  Age: 80 Year
  Sex: Female

DRUGS (3)
  1. EDOXABAN TOSYLATE [Suspect]
     Active Substance: EDOXABAN TOSYLATE
     Indication: Product used for unknown indication
     Dosage: UNK
     Route: 048
  2. PREDNISOLONE [Suspect]
     Active Substance: PREDNISOLONE
     Indication: Segmented hyalinising vasculitis
     Dosage: 15MG/DAY
     Route: 048
  3. PREDNISOLONE [Suspect]
     Active Substance: PREDNISOLONE
     Indication: Skin ulcer
     Dosage: 10MG/DAY
     Route: 048

REACTIONS (7)
  - Colon cancer [Unknown]
  - Large intestinal ulcer [Unknown]
  - Colon injury [Unknown]
  - Post procedural fistula [Recovering/Resolving]
  - Abdominal abscess [Recovered/Resolved]
  - Deep vein thrombosis [Unknown]
  - Steroid diabetes [Unknown]
